FAERS Safety Report 9468587 (Version 1)
Quarter: 2013Q3

REPORT INFORMATION
  Report Type: Report from Study
  Country: GB (occurrence: GB)
  Receive Date: 20130821
  Receipt Date: 20130821
  Transmission Date: 20140515
  Serious: Yes (Other)
  Sender: FDA-Public Use
  Company Number: GB-VERTEX PHARMACEUTICALS INC-2013-008932

PATIENT
  Age: 31 Year
  Sex: Male

DRUGS (4)
  1. VX-950 (TELAPREVIR) [Suspect]
     Indication: HEPATITIS C
     Dosage: 750 MG, TID, TABLET
     Route: 048
     Dates: start: 20130227, end: 20130522
  2. RIBAVIRIN [Suspect]
     Indication: HEPATITIS C
     Dosage: TABLET, BID
     Route: 048
     Dates: start: 20130227
  3. INTERFERON [Suspect]
     Indication: HEPATITIS C
     Dosage: UNK, QW
     Route: 058
     Dates: start: 20130227
  4. INTERFERON [Suspect]
     Dosage: DOSAGE FORM: INJECTION
     Route: 058

REACTIONS (1)
  - Rash [Recovered/Resolved]
